FAERS Safety Report 20676844 (Version 4)
Quarter: 2022Q3

REPORT INFORMATION
  Report Type: Report from Study
  Country: JP (occurrence: JP)
  Receive Date: 20220406
  Receipt Date: 20220722
  Transmission Date: 20221026
  Serious: Yes (Hospitalization, Other)
  Sender: FDA-Public Use
  Company Number: JP-ABBVIE-18K-087-2325093-00

PATIENT
  Age: 63 Year
  Sex: Male
  Weight: 51 kg

DRUGS (19)
  1. CARBIDOPA\LEVODOPA [Suspect]
     Active Substance: CARBIDOPA\LEVODOPA
     Indication: Product used for unknown indication
     Dosage: MD: 13.5 ML, CD: 3.4 ML/HR X 16 HRS, ED: 1 ML/UNIT X 1 TIME
     Route: 050
     Dates: start: 20161219
  2. CARBIDOPA\LEVODOPA [Suspect]
     Active Substance: CARBIDOPA\LEVODOPA
     Dosage: MD: 13.5 ML?CD: 3.6 ML/HR X 16 HRS
     Route: 050
     Dates: start: 20190402, end: 20190403
  3. CARBIDOPA\LEVODOPA [Suspect]
     Active Substance: CARBIDOPA\LEVODOPA
     Dosage: MD: 13.5 ML?CD: 3.6 ML/HR X 16 HRS?ED: 1 ML/UNIT X 0
     Route: 050
     Dates: start: 20190408, end: 20190417
  4. CARBIDOPA\LEVODOPA [Suspect]
     Active Substance: CARBIDOPA\LEVODOPA
     Dosage: MD: 13.5 ML?CD: 3.6 ML/HR X 16 HRS?ED: 1 ML/UNIT X 0
     Route: 050
     Dates: start: 20190426, end: 20190624
  5. CARBIDOPA\LEVODOPA [Suspect]
     Active Substance: CARBIDOPA\LEVODOPA
     Route: 050
     Dates: start: 20190625, end: 20190814
  6. CARBIDOPA\LEVODOPA [Suspect]
     Active Substance: CARBIDOPA\LEVODOPA
     Dosage: MD: 13.5 ML?CD: 3.6 ML/HR X 16 HRS?ED: 1 ML/UNIT X 0
     Route: 050
     Dates: start: 20190822, end: 20190923
  7. CARBIDOPA\LEVODOPA [Suspect]
     Active Substance: CARBIDOPA\LEVODOPA
     Dosage: MD: 13.5 ML, CD: 3.4 ML/HR  16 HRS, ED: 1 ML/UNIT  0
     Route: 050
     Dates: start: 20190924, end: 20191215
  8. MAGNESIUM OXIDE [Concomitant]
     Active Substance: MAGNESIUM OXIDE
     Indication: Prophylaxis
     Route: 048
  9. MAGNESIUM OXIDE [Concomitant]
     Active Substance: MAGNESIUM OXIDE
     Route: 048
  10. FAMOTIDINE [Concomitant]
     Active Substance: FAMOTIDINE
     Indication: Prophylaxis
     Route: 048
  11. LUBIPROSTONE [Concomitant]
     Active Substance: LUBIPROSTONE
     Indication: Product used for unknown indication
     Route: 048
     Dates: start: 20190118
  12. LOXOPROFEN SODIUM DIHYDRATE [Concomitant]
     Active Substance: LOXOPROFEN SODIUM DIHYDRATE
     Indication: Product used for unknown indication
     Route: 048
     Dates: end: 20190429
  13. AMEZINIUM METILSULFATE [Concomitant]
     Active Substance: AMEZINIUM METILSULFATE
     Indication: Product used for unknown indication
     Route: 048
     Dates: end: 20191218
  14. CARBIDOPA\LEVODOPA [Concomitant]
     Active Substance: CARBIDOPA\LEVODOPA
     Indication: Product used for unknown indication
     Route: 048
     Dates: start: 20191216, end: 20191223
  15. CARBIDOPA\ENTACAPONE\LEVODOPA [Concomitant]
     Active Substance: CARBIDOPA\ENTACAPONE\LEVODOPA
     Indication: Product used for unknown indication
     Route: 048
     Dates: start: 20191224
  16. ENTACAPONE [Concomitant]
     Active Substance: ENTACAPONE
     Indication: Parkinson^s disease
     Route: 048
     Dates: start: 20191216, end: 20191223
  17. ROTIGOTINE [Concomitant]
     Active Substance: ROTIGOTINE
     Indication: Parkinson^s disease
     Route: 062
     Dates: start: 20191223, end: 20191227
  18. ROTIGOTINE [Concomitant]
     Active Substance: ROTIGOTINE
     Route: 062
     Dates: start: 20191228
  19. DROXIDOPA [Concomitant]
     Active Substance: DROXIDOPA
     Indication: Parkinson^s disease
     Route: 048
     Dates: start: 20191219

REACTIONS (11)
  - Hospitalisation [Unknown]
  - Dementia Alzheimer^s type [Not Recovered/Not Resolved]
  - Depression [Recovering/Resolving]
  - Back pain [Unknown]
  - Abdominal injury [Unknown]
  - Fall [Unknown]
  - Dyskinesia [Recovered/Resolved]
  - Stoma site reaction [Not Recovered/Not Resolved]
  - Bezoar [Recovered/Resolved]
  - Dyskinesia [Not Recovered/Not Resolved]
  - Constipation [Not Recovered/Not Resolved]

NARRATIVE: CASE EVENT DATE: 20180409
